FAERS Safety Report 10933014 (Version 1)
Quarter: 2015Q1

REPORT INFORMATION
  Report Type: Spontaneous
  Country: US (occurrence: None)
  Receive Date: 20150319
  Receipt Date: 20150319
  Transmission Date: 20150721
  Serious: No
  Sender: FDA-Public Use
  Company Number: 2015CT000031

PATIENT
  Sex: Female

DRUGS (2)
  1. INSULIN [Concomitant]
     Active Substance: INSULIN NOS
  2. KORLYM [Suspect]
     Active Substance: MIFEPRISTONE
     Indication: CUSHING^S SYNDROME
     Dates: start: 20150116

REACTIONS (1)
  - Blood glucose fluctuation [None]
